FAERS Safety Report 11710499 (Version 2)
Quarter: 2015Q4

REPORT INFORMATION
  Report Type: Spontaneous
  Country: US (occurrence: US)
  Receive Date: 20151104
  Receipt Date: 20151110
  Transmission Date: 20160304
  Serious: No
  Sender: FDA-Public Use
  Company Number: US-ELI_LILLY_AND_COMPANY-US201108009071

PATIENT
  Age: 81 Year
  Sex: Female

DRUGS (1)
  1. FORTEO [Suspect]
     Active Substance: TERIPARATIDE
     Indication: OSTEOPOROSIS
     Dosage: 20 UG, QD
     Route: 065
     Dates: start: 20110819

REACTIONS (5)
  - Fatigue [Unknown]
  - Blood pressure decreased [Unknown]
  - Injection site pain [Unknown]
  - Muscle spasms [Unknown]
  - Somnolence [Unknown]

NARRATIVE: CASE EVENT DATE: 20110913
